FAERS Safety Report 22140307 (Version 1)
Quarter: 2023Q1

REPORT INFORMATION
  Report Type: Spontaneous
  Country: US (occurrence: None)
  Receive Date: 20230324
  Receipt Date: 20230324
  Transmission Date: 20230418
  Serious: No
  Sender: FDA-Public Use
  Company Number: None

PATIENT
  Age: 41 Year
  Sex: Female

DRUGS (4)
  1. OBAGI NU-DERM FX SYSTEM - NORMAL TO DRY [Suspect]
     Active Substance: OCTINOXATE\ZINC OXIDE
     Indication: Skin hyperpigmentation
     Dates: start: 20230316, end: 20230318
  2. OBAGI NU-DERM FX SYSTEM - NORMAL TO DRY [Suspect]
     Active Substance: OCTINOXATE\ZINC OXIDE
     Indication: Chloasma
  3. TRETINOIN [Suspect]
     Active Substance: TRETINOIN
     Indication: Skin hyperpigmentation
     Dates: start: 20230316, end: 20230317
  4. TRETINOIN [Suspect]
     Active Substance: TRETINOIN
     Indication: Chloasma

REACTIONS (10)
  - Skin wrinkling [None]
  - Condition aggravated [None]
  - Dilated pores [None]
  - Skin discolouration [None]
  - Pain of skin [None]
  - Skin burning sensation [None]
  - Erythema [None]
  - Facial pain [None]
  - Skin fissures [None]
  - Skin texture abnormal [None]

NARRATIVE: CASE EVENT DATE: 20230318
